FAERS Safety Report 9210419 (Version 2)
Quarter: 2013Q2

REPORT INFORMATION
  Report Type: Spontaneous
  Country: US (occurrence: US)
  Receive Date: 20130404
  Receipt Date: 20130530
  Transmission Date: 20140414
  Serious: Yes (Hospitalization)
  Sender: FDA-Public Use
  Company Number: US-TEVA-395622USA

PATIENT
  Age: 33 Year
  Sex: Male

DRUGS (8)
  1. PROAIR HFA [Suspect]
     Indication: DYSPNOEA
     Route: 055
  2. ADVAIR [Concomitant]
     Indication: ASTHMA
     Dosage: TWICE A DAY
  3. BARISOPRODOL [Concomitant]
     Indication: MUSCLE SPASMS
  4. LYRICA [Concomitant]
     Indication: NERVOUSNESS
  5. FLUOXETINE [Concomitant]
     Indication: DEPRESSION
  6. PROMETHAZINE [Concomitant]
     Indication: NAUSEA
  7. HYDROCODONE [Concomitant]
     Indication: PAIN
  8. ALPRAZOLAM [Concomitant]
     Indication: ANXIETY

REACTIONS (3)
  - Loss of consciousness [Recovered/Resolved]
  - Respiratory arrest [Recovered/Resolved]
  - Asthma [Recovered/Resolved]
